FAERS Safety Report 5566651-6 (Version None)
Quarter: 2007Q4

REPORT INFORMATION
  Report Type: 
  Country: None (occurrence: None)
  Receive Date: 20071219
  Receipt Date: 20071213
  Transmission Date: 20080405
  Serious: Yes (Other)
  Sender: FDA-Public Use
  Company Number: BE-ROCHE-534317

PATIENT
  Age: 37 Year
  Sex: Female
  Weight: 81 kg

DRUGS (2)
  1. CAPECITABINE [Suspect]
     Indication: BREAST CANCER
     Dosage: AS PER PROTOCOL - 825 MG/M^2 WILL BE GIVEN P.O., TWICE A DAY (TOTAL DAILY DOSE 1650 MG/M^2) FROM DA+
     Route: 048
     Dates: start: 20070816, end: 20071128
  2. DOCETAXEL [Suspect]
     Indication: BREAST CANCER
     Dosage: AS PER PROTOCOL: 75 MG/M^2 SHOULD BE ADMINISTERED AS A 1-HOUR I.V. INFUSION, ON DAY 1.
     Route: 042
     Dates: start: 20070816, end: 20071128

REACTIONS (1)
  - CORNEAL EROSION [None]
